FAERS Safety Report 4718286-2 (Version None)
Quarter: 2005Q3

REPORT INFORMATION
  Report Type: 
  Country: None (occurrence: None)
  Receive Date: 20050718
  Receipt Date: 20050110
  Transmission Date: 20060218
  Serious: No
  Sender: FDA-Public Use
  Company Number: 2005000062

PATIENT
  Age: 69 Year
  Sex: Male
  Weight: 58.9676 kg

DRUGS (2)
  1. TARCEVA [Suspect]
     Indication: PANCREATIC CARCINOMA
     Dosage: 150 MG (QD), ORAL
     Route: 048
     Dates: start: 20041230
  2. TARCEVA [Suspect]
     Dosage: 75 MG (QD), ORAL
     Route: 048

REACTIONS (8)
  - ABDOMINAL PAIN UPPER [None]
  - CONDITION AGGRAVATED [None]
  - DIARRHOEA [None]
  - DRY SKIN [None]
  - FATIGUE [None]
  - FEELING COLD [None]
  - RASH [None]
  - STOMACH DISCOMFORT [None]
